FAERS Safety Report 5598516-8 (Version None)
Quarter: 2008Q1

REPORT INFORMATION
  Report Type: 
  Country: None (occurrence: None)
  Receive Date: 20080122
  Receipt Date: 20080116
  Transmission Date: 20080703
  Serious: Yes (Other)
  Sender: FDA-Public Use
  Company Number: PHEH2007US15193

PATIENT
  Age: 80 Year
  Sex: Male
  Weight: 82.721 kg

DRUGS (8)
  1. GLEEVEC [Suspect]
     Indication: GASTROINTESTINAL STROMAL TUMOUR
     Dosage: 600 MG, QD
     Route: 048
     Dates: start: 20071001, end: 20071101
  2. GLEEVEC [Suspect]
     Dates: start: 20071211
  3. HYDROCHLOROTHIAZIDE [Concomitant]
  4. FINASTERIDE [Concomitant]
  5. NEXIUM [Concomitant]
  6. HYZAAR [Concomitant]
  7. LOVASTATIN [Concomitant]
  8. TRIAMTERENE [Concomitant]

REACTIONS (9)
  - ABDOMINAL PAIN [None]
  - BLOOD AMYLASE INCREASED [None]
  - CHOLECYSTECTOMY [None]
  - CHOLELITHIASIS [None]
  - GALLBLADDER DISORDER [None]
  - LIPASE INCREASED [None]
  - NAUSEA [None]
  - PANCREATITIS [None]
  - VOMITING [None]
